FAERS Safety Report 11058732 (Version 1)
Quarter: 2015Q2

REPORT INFORMATION
  Report Type: Spontaneous
  Country: GB (occurrence: GB)
  Receive Date: 20150423
  Receipt Date: 20150423
  Transmission Date: 20150821
  Serious: Yes (Other)
  Sender: FDA-Public Use
  Company Number: GB-JNJFOC-20150415122

PATIENT
  Age: 59 Year
  Sex: Male
  Weight: 121 kg

DRUGS (6)
  1. OMEPRAZOLE. [Concomitant]
     Active Substance: OMEPRAZOLE
     Dosage: CUMULATIVE DOSE TO FIRST REACTION:1.0
     Route: 065
     Dates: start: 20150408
  2. BENDROFLUMETHIAZIDE [Concomitant]
     Active Substance: BENDROFLUMETHIAZIDE
     Dosage: IN THE MORNING, CUMULATIVE DOSE TO FIRST REACTION: 154.958333
     Route: 065
     Dates: start: 20141104
  3. NAPROXEN. [Concomitant]
     Active Substance: NAPROXEN
     Dosage: CUMULATIVE DOSE TO FIRST REACTION: 2
     Route: 065
     Dates: start: 20150408
  4. PROCHLORPERAZINE. [Concomitant]
     Active Substance: PROCHLORPERAZINE
     Dosage: CUMULATIVE DOSE TO FIRST REACTION: 3.0
     Route: 065
     Dates: start: 20150408
  5. CANDESARTAN [Concomitant]
     Active Substance: CANDESARTAN
     Dosage: CUMULATIVE DOSE TO FIRST REACTION: 309.916666
     Route: 065
     Dates: start: 20141104
  6. COCODAMOL [Suspect]
     Active Substance: ACETAMINOPHEN\CODEINE PHOSPHATE
     Indication: PRODUCT USED FOR UNKNOWN INDICATION
     Route: 065
     Dates: start: 20150408

REACTIONS (1)
  - Vomiting [Recovering/Resolving]

NARRATIVE: CASE EVENT DATE: 20150408
